FAERS Safety Report 19432538 (Version 2)
Quarter: 2021Q3

REPORT INFORMATION
  Report Type: Spontaneous
  Country: IT (occurrence: IT)
  Receive Date: 20210617
  Receipt Date: 20210927
  Transmission Date: 20211014
  Serious: Yes (Disabling)
  Sender: FDA-Public Use
  Company Number: IT-MYLANLABS-2021M1035134

PATIENT
  Age: 32 Year
  Sex: Female

DRUGS (2)
  1. COPEMYLTRI [Suspect]
     Active Substance: GLATIRAMER ACETATE
     Dosage: 40 MILLIGRAM, 3XW
     Route: 058
     Dates: start: 20210101, end: 20210208
  2. COPEMYLTRI [Suspect]
     Active Substance: GLATIRAMER ACETATE
     Indication: MULTIPLE SCLEROSIS
     Dosage: 40 MILLIGRAM, 3XW
     Route: 058
     Dates: start: 20200928, end: 20201223

REACTIONS (5)
  - Injection site necrosis [Recovering/Resolving]
  - Injection site pain [Recovering/Resolving]
  - Injection site ulcer [Recovering/Resolving]
  - Injection site bruising [Recovering/Resolving]
  - Toxicity to various agents [Recovering/Resolving]

NARRATIVE: CASE EVENT DATE: 20201219
